FAERS Safety Report 5816982-7 (Version None)
Quarter: 2008Q3

REPORT INFORMATION
  Report Type: 
  Country: None (occurrence: None)
  Receive Date: 20080722
  Receipt Date: 20080715
  Transmission Date: 20090109
  Serious: Yes (Death, Hospitalization)
  Sender: FDA-Public Use
  Company Number: KR-JNJFOC-20080302145

PATIENT
  Age: 33 Year
  Sex: Female

DRUGS (4)
  1. RISPERDAL [Suspect]
     Dosage: 35 TO 40 MG TAKEN AT ONCE
     Route: 048
  2. RISPERDAL [Suspect]
     Indication: OBSESSIVE-COMPULSIVE DISORDER
     Route: 048
  3. CLONAZEPAM [Concomitant]
     Route: 048
  4. CITALOPRAM HYDROBROMIDE [Concomitant]
     Route: 048

REACTIONS (4)
  - CARDIAC DISORDER [None]
  - COMPLETED SUICIDE [None]
  - INTENTIONAL OVERDOSE [None]
  - METABOLIC DISORDER [None]
